FAERS Safety Report 8139271-7 (Version None)
Quarter: 2012Q1

REPORT INFORMATION
  Report Type: 
  Country: None (occurrence: None)
  Receive Date: 20120215
  Receipt Date: 20120214
  Transmission Date: 20120608
  Serious: No
  Sender: FDA-Public Use
  Company Number: US-PFIZER INC-2012040121

PATIENT
  Sex: Female
  Weight: 64.1 kg

DRUGS (15)
  1. AVINZA [Concomitant]
     Indication: BACK DISORDER
     Dosage: 60 MG, 2X/DAY
     Route: 048
  2. GAS-X [Concomitant]
     Dosage: UNK,2X/DAY
     Route: 048
  3. ACIPHEX [Concomitant]
     Indication: GASTROINTESTINAL DISORDER
     Dosage: 20 MG, 2X/DAY
     Route: 048
  4. SIMVASTATIN [Concomitant]
     Indication: BLOOD CHOLESTEROL INCREASED
     Dosage: 200 MG, UNK
  5. CELEBREX [Concomitant]
     Indication: ARTHRITIS
     Dosage: 200 MG, 1X/DAY
     Route: 048
  6. CALTRATE 600+D [Concomitant]
     Dosage: UNK, 1X/DAY
  7. EXELON [Concomitant]
     Indication: DEMENTIA ALZHEIMER'S TYPE
     Dosage: UNK
  8. SYNTHROID [Concomitant]
     Indication: THYROID DISORDER
     Dosage: UNK
  9. CHANTIX [Suspect]
     Indication: SMOKING CESSATION THERAPY
     Dosage: 0.5 MG, 1X/DAY
     Route: 048
     Dates: start: 20120206, end: 20120201
  10. SUDAFED 12 HOUR [Concomitant]
     Indication: HYPERSENSITIVITY
     Dosage: UNK, 1X/DAY
     Route: 048
  11. AMLODIPINE [Concomitant]
     Indication: HYPERTENSION
     Dosage: 2.5 MG, 1X/DAY
     Route: 048
  12. CENTRUM SILVER ULTRA WOMENS [Concomitant]
     Dosage: UNK, 1X/DAY
  13. CHANTIX [Suspect]
     Dosage: UNK
     Route: 048
     Dates: start: 20120201
  14. COMBIVENT [Concomitant]
     Indication: ASTHMA
     Dosage: UNK, 1X/DAY
  15. HYDROXYZINE [Concomitant]
     Indication: SLEEP DISORDER
     Dosage: 10 MG, AS NEEDED
     Route: 048

REACTIONS (5)
  - FRUSTRATION [None]
  - MOOD ALTERED [None]
  - AGITATION [None]
  - ANGER [None]
  - ABNORMAL DREAMS [None]
